FAERS Safety Report 5669293-7 (Version None)
Quarter: 2008Q1

REPORT INFORMATION
  Report Type: 
  Country: None (occurrence: None)
  Receive Date: 20080317
  Receipt Date: 20080307
  Transmission Date: 20080703
  Serious: Yes (Other)
  Sender: FDA-Public Use
  Company Number: PHHY2008BE02833

PATIENT
  Age: 60 Year
  Sex: Female
  Weight: 73 kg

DRUGS (3)
  1. CYCLOSPORINE [Suspect]
     Indication: PSORIASIS
     Dosage: 2.5 MG/KG/DAY
     Dates: start: 20080124
  2. XYZAL [Concomitant]
  3. AERIUS [Concomitant]

REACTIONS (4)
  - ERYTHEMA [None]
  - HEADACHE [None]
  - HYPERTENSION [None]
  - MALAISE [None]
